FAERS Safety Report 9882617 (Version 2)
Quarter: 2014Q1

REPORT INFORMATION
  Report Type: Spontaneous
  Country: US (occurrence: US)
  Receive Date: 20140207
  Receipt Date: 20140207
  Transmission Date: 20141002
  Serious: Yes (Death, Hospitalization)
  Sender: FDA-Public Use
  Company Number: US-DENDREON CORPORATION-2013PROUSA03385

PATIENT
  Age: 88 Year
  Sex: Male
  Weight: 82.54 kg

DRUGS (7)
  1. PROVENGE [Suspect]
     Indication: PROSTATE CANCER METASTATIC
     Dosage: 250 ML, SINGLE
     Route: 042
     Dates: start: 20100917, end: 20100917
  2. PROVENGE [Suspect]
     Dosage: 250 ML, SINGLE
     Route: 042
     Dates: start: 20101001, end: 20101001
  3. PROVENGE [Suspect]
     Dosage: 250 ML, SINGLE
     Route: 042
     Dates: start: 20101015, end: 20101015
  4. LUPRON [Concomitant]
     Indication: PROSTATE CANCER METASTATIC
  5. XGEVA [Concomitant]
     Indication: PRODUCT USED FOR UNKNOWN INDICATION
  6. ZYTIGA [Concomitant]
     Indication: PRODUCT USED FOR UNKNOWN INDICATION
  7. PREDNISONE [Concomitant]
     Indication: PRODUCT USED FOR UNKNOWN INDICATION

REACTIONS (6)
  - Prostate cancer metastatic [Fatal]
  - Clostridium difficile colitis [Unknown]
  - Ascites [Unknown]
  - Tachycardia [Unknown]
  - Nausea [Unknown]
  - Vomiting [Unknown]
